FAERS Safety Report 10125017 (Version 2)
Quarter: 2015Q1

REPORT INFORMATION
  Report Type: Other
  Country: US (occurrence: US)
  Receive Date: 20140427
  Receipt Date: 20150209
  Transmission Date: 20150720
  Serious: Yes (Hospitalization, Other)
  Sender: FDA-Public Use
  Company Number: US-GSKPPD-2014GSK027667

PATIENT
  Age: 59 Year
  Sex: Female

DRUGS (8)
  1. LOSARTAN POTASSIUM. [Concomitant]
     Active Substance: LOSARTAN POTASSIUM
  2. CLOPIDOGREL [Concomitant]
     Active Substance: CLOPIDOGREL BISULFATE
     Dates: start: 200207
  3. CARVEDILOL. [Concomitant]
     Active Substance: CARVEDILOL
     Dates: start: 20021004
  4. ASPIRIN. [Concomitant]
     Active Substance: ASPIRIN
     Dates: start: 200207
  5. NITROGLYCERIN. [Concomitant]
     Active Substance: NITROGLYCERIN
  6. HYDROCHLOROTHIAZIDE W/LOSARTAN POTASSIUM [Concomitant]
     Dosage: 100/25MG
  7. AVANDIA [Suspect]
     Active Substance: ROSIGLITAZONE MALEATE
     Indication: DIABETES MELLITUS
     Dosage: DATES OF AVANDIA USE COULD NOT BE CONFIRMED IN RECORDS REVIEWED
     Route: 048
  8. ATENOLOL. [Concomitant]
     Active Substance: ATENOLOL
     Dates: end: 20021004

REACTIONS (1)
  - Myocardial infarction [Recovered/Resolved]

NARRATIVE: CASE EVENT DATE: 20021001
